FAERS Safety Report 9063103 (Version 1)
Quarter: 2013Q1

REPORT INFORMATION
  Report Type: Report from Study
  Country: US (occurrence: US)
  Receive Date: 20130131
  Receipt Date: 20130131
  Transmission Date: 20140127
  Serious: No
  Sender: FDA-Public Use
  Company Number: US-ABBOTT-12P-163-0992996-00

PATIENT
  Age: 27 Year
  Sex: Female

DRUGS (4)
  1. HUMIRA [Suspect]
     Indication: CROHN^S DISEASE
     Dates: start: 20120806
  2. IMURAN [Concomitant]
     Indication: CROHN^S DISEASE
     Dosage: DAILY
  3. CIPRO [Concomitant]
     Indication: INFECTION
  4. ORTHO TRI-CYCLEN LO [Concomitant]
     Indication: CONTRACEPTION
     Dosage: 1 PILL DAILY

REACTIONS (6)
  - Pyrexia [Recovered/Resolved]
  - Oropharyngeal pain [Recovered/Resolved]
  - Oropharyngeal pain [Recovered/Resolved]
  - Vomiting [Recovered/Resolved]
  - Influenza like illness [Recovered/Resolved]
  - Nasopharyngitis [Recovered/Resolved]
